FAERS Safety Report 5669337-2 (Version None)
Quarter: 2008Q1

REPORT INFORMATION
  Report Type: 
  Country: None (occurrence: None)
  Receive Date: 20080317
  Receipt Date: 20080311
  Transmission Date: 20080703
  Serious: Yes (Hospitalization, Other)
  Sender: FDA-Public Use
  Company Number: PHEH2008US01162

PATIENT
  Age: 64 Year
  Sex: Female

DRUGS (7)
  1. PROTONIX [Concomitant]
     Dosage: 40 MG, QD
     Route: 048
     Dates: start: 20071101
  2. GLUCOPHAGE [Concomitant]
     Dosage: 500 MG, QD
     Route: 048
     Dates: start: 20071101
  3. DILANTIN /CAN/ [Concomitant]
     Dosage: 300 MG, BID
     Route: 048
     Dates: start: 20071101
  4. LEXAPRO [Concomitant]
     Dosage: 10 MG, QD
     Route: 048
     Dates: start: 20071101
  5. HYDROCHLOROTHIAZIDE [Concomitant]
     Dosage: 25 MG, QD
     Route: 048
     Dates: start: 20061201
  6. ASPIRIN [Concomitant]
     Dosage: 325 MG, QD
     Route: 048
     Dates: start: 20071101
  7. LOTREL [Suspect]
     Indication: HYPERTENSION
     Dosage: 5 MG AML,ODIPINE, 10 MG BENAZAPRIL
     Route: 048
     Dates: start: 20070101

REACTIONS (4)
  - CEREBRAL HAEMORRHAGE [None]
  - CONVULSION [None]
  - FLUID OVERLOAD [None]
  - HYPONATRAEMIA [None]
